FAERS Safety Report 12051315 (Version 1)
Quarter: 2016Q1

REPORT INFORMATION
  Report Type: Spontaneous
  Country: US (occurrence: None)
  Receive Date: 20160208
  Receipt Date: 20160208
  Transmission Date: 20160526
  Serious: Yes (Other)
  Sender: FDA-Public Use
  Company Number: None

PATIENT
  Age: 73 Year
  Sex: Male

DRUGS (1)
  1. XTANDI [Suspect]
     Active Substance: ENZALUTAMIDE
     Dosage: 4 QD

REACTIONS (5)
  - Constipation [None]
  - Depressed mood [None]
  - Decreased appetite [None]
  - Gastric disorder [None]
  - Nausea [None]

NARRATIVE: CASE EVENT DATE: 20160204
